FAERS Safety Report 7607123-4 (Version None)
Quarter: 2011Q3

REPORT INFORMATION
  Report Type: 
  Country: None (occurrence: None)
  Receive Date: 20110713
  Receipt Date: 20110629
  Transmission Date: 20111222
  Serious: Yes (Death, Life-Threatening)
  Sender: FDA-Public Use
  Company Number: JP-CELGENEUS-087-50794-11041971

PATIENT
  Sex: Male

DRUGS (21)
  1. IDARUBICIN HCL [Concomitant]
     Route: 065
     Dates: start: 20110328
  2. FRESH FROZEN PLASMA [Concomitant]
     Dosage: 6 IU (INTERNATIONAL UNIT)
     Route: 051
     Dates: start: 20110328, end: 20110328
  3. VITAMIN D [Concomitant]
     Route: 065
  4. VIDAZA [Suspect]
     Dosage: 75 MILLIGRAM/SQ. METER
     Route: 058
     Dates: start: 20110314, end: 20110328
  5. EPOGEN [Concomitant]
     Route: 065
  6. CIPROFLOXACIN HCL [Concomitant]
     Dosage: 600 MILLIGRAM
     Route: 048
     Dates: start: 20110314, end: 20110402
  7. ITRACONAZOLE [Concomitant]
     Dosage: 20 MILLILITER
     Route: 048
     Dates: start: 20110314, end: 20110410
  8. STEROID [Concomitant]
     Dosage: PULSE
     Route: 065
     Dates: start: 20110101
  9. KYTRIL [Concomitant]
     Dosage: 3 MILLIGRAM
     Route: 051
     Dates: start: 20110314, end: 20110319
  10. ZOLPIDEM [Concomitant]
     Dosage: 5-10MG
     Route: 048
     Dates: start: 20110314, end: 20110331
  11. VITAMIN K2 [Concomitant]
     Route: 065
  12. ACLACINOMYCIN [Concomitant]
     Route: 065
     Dates: start: 20110328
  13. OXYGEN [Concomitant]
     Route: 065
     Dates: start: 20110101
  14. FAMOTIDINE [Concomitant]
     Dosage: 1 DOSAGE FORMS
     Route: 048
     Dates: start: 20110314, end: 20110405
  15. WHOLE BLOOD [Concomitant]
     Route: 051
  16. SULFAMETHOXAZOLE [Concomitant]
     Dosage: 1 GRAM
     Route: 048
     Dates: start: 20110314, end: 20110405
  17. RECOMODULIN [Concomitant]
     Dosage: 25,600 UT
     Route: 051
     Dates: start: 20110315, end: 20110322
  18. GRAN [Concomitant]
     Dosage: 300 MICROGRAM
     Route: 051
     Dates: start: 20110322, end: 20110327
  19. CYTARABINE [Concomitant]
     Route: 065
     Dates: start: 20110328
  20. PLATELETS [Concomitant]
     Dosage: 10 IU (INTERNATIONAL UNIT)
     Route: 051
     Dates: start: 20110316, end: 20110331
  21. MUCOSTA [Concomitant]
     Dosage: 300 MILLIGRAM
     Route: 048
     Dates: start: 20110314, end: 20110402

REACTIONS (4)
  - PLATELET COUNT DECREASED [None]
  - MYELODYSPLASTIC SYNDROME [None]
  - NEUTROPHIL COUNT DECREASED [None]
  - DISSEMINATED INTRAVASCULAR COAGULATION [None]
